FAERS Safety Report 8922738 (Version 2)
Quarter: 2013Q1

REPORT INFORMATION
  Report Type: Spontaneous
  Country: FR (occurrence: FR)
  Receive Date: 20121123
  Receipt Date: 20130213
  Transmission Date: 20140127
  Serious: Yes (Hospitalization, Other)
  Sender: FDA-Public Use
  Company Number: FR-BRISTOL-MYERS SQUIBB COMPANY-17135369

PATIENT
  Age: 87 Year
  Sex: Male

DRUGS (7)
  1. COUMADIN TABS [Suspect]
     Indication: PULMONARY EMBOLISM
     Route: 048
     Dates: start: 2011, end: 20121007
  2. AMLOR [Concomitant]
  3. PERMIXON [Concomitant]
  4. COKENZEN [Concomitant]
  5. ALLOPURINOL [Concomitant]
  6. DIFFU-K [Concomitant]
  7. ZOPLICONE [Concomitant]

REACTIONS (2)
  - Subdural haematoma [Recovered/Resolved]
  - Fall [Unknown]
